FAERS Safety Report 5407254-3 (Version None)
Quarter: 2007Q3

REPORT INFORMATION
  Report Type: 
  Country: None (occurrence: None)
  Receive Date: 20070807
  Receipt Date: 20070801
  Transmission Date: 20080115
  Serious: Yes (Life-Threatening, Hospitalization)
  Sender: FDA-Public Use
  Company Number: B0480174A

PATIENT
  Sex: Male
  Weight: 70 kg

DRUGS (1)
  1. AUGMENTIN '125' [Suspect]
     Dosage: 1G PER DAY
     Route: 048

REACTIONS (2)
  - DRUG HYPERSENSITIVITY [None]
  - SKIN REACTION [None]
